FAERS Safety Report 8687710 (Version 3)
Quarter: 2013Q1

REPORT INFORMATION
  Report Type: Spontaneous
  Country: US (occurrence: US)
  Receive Date: 20120727
  Receipt Date: 20130108
  Transmission Date: 20140127
  Serious: Yes (Other)
  Sender: FDA-Public Use
  Company Number: US-009507513-1205USA04891

PATIENT
  Age: 50 Year
  Sex: Female
  Weight: 51.8 kg

DRUGS (6)
  1. EMEND FOR INJECTION [Suspect]
     Indication: PROPHYLAXIS OF NAUSEA AND VOMITING
     Dosage: 150 MG, ONCE
     Route: 041
     Dates: start: 20120524
  2. EMEND FOR INJECTION [Suspect]
     Dosage: 150 MG, ONCE
     Route: 041
     Dates: start: 20120503
  3. TAXOL [Concomitant]
     Dosage: 135 MG/M2, UNK
     Dates: start: 20120524
  4. TAXOL [Concomitant]
     Dosage: 135 MG/M2, UNK
     Dates: start: 20120503
  5. CISPLATIN [Concomitant]
     Dosage: 50 MG/M2, UNK
     Dates: start: 20120524
  6. CISPLATIN [Concomitant]
     Dosage: 50 MG/M2, UNK
     Dates: start: 20120503

REACTIONS (2)
  - Dyspnoea [Recovered/Resolved]
  - Chest pain [Recovered/Resolved]
